FAERS Safety Report 16841945 (Version 2)
Quarter: 2019Q4

REPORT INFORMATION
  Report Type: Report from Study
  Country: GB (occurrence: GB)
  Receive Date: 20190923
  Receipt Date: 20191224
  Transmission Date: 20200122
  Serious: Yes (Other)
  Sender: FDA-Public Use
  Company Number: PHHY2015GB122129

PATIENT
  Age: 55 Year
  Sex: Female

DRUGS (2)
  1. GILENYA [Suspect]
     Active Substance: FINGOLIMOD HYDROCHLORIDE
     Dosage: 0.5 MG, UNK
     Route: 065
     Dates: start: 201503, end: 20180612
  2. GILENYA [Suspect]
     Active Substance: FINGOLIMOD HYDROCHLORIDE
     Indication: MULTIPLE SCLEROSIS
     Dosage: UNK, QD
     Route: 048
     Dates: start: 20140304

REACTIONS (10)
  - Alanine aminotransferase increased [Unknown]
  - Pain [Unknown]
  - Neuralgia [Unknown]
  - Muscular weakness [Unknown]
  - Visual impairment [Unknown]
  - Basal cell carcinoma [Unknown]
  - Gait disturbance [Unknown]
  - Muscle spasticity [Unknown]
  - Intraocular melanoma [Recovering/Resolving]
  - Fatigue [Unknown]

NARRATIVE: CASE EVENT DATE: 20150605
